FAERS Safety Report 21617416 (Version 1)
Quarter: 2022Q4

REPORT INFORMATION
  Report Type: Spontaneous
  Country: US (occurrence: US)
  Receive Date: 20221119
  Receipt Date: 20221119
  Transmission Date: 20230112
  Serious: Yes (Other)
  Sender: FDA-Public Use
  Company Number: US-BAXTER-2022BAX024477

PATIENT
  Age: 24 Year
  Sex: Male

DRUGS (10)
  1. IFOSFAMIDE [Suspect]
     Active Substance: IFOSFAMIDE
     Indication: Bone giant cell tumour malignant
     Dosage: HIGH-DOSE, SALVAGE CHEMOTHERAPY, DISCONTINUED AFTER 1 CYCLE
     Route: 065
  2. IFOSFAMIDE [Suspect]
     Active Substance: IFOSFAMIDE
     Indication: Salvage therapy
  3. DOXORUBICIN [Suspect]
     Active Substance: DOXORUBICIN
     Indication: Bone giant cell tumour malignant
     Dosage: SYSTEMIC CHEMOTHERAPY
     Route: 065
  4. DOXORUBICIN [Suspect]
     Active Substance: DOXORUBICIN
     Indication: Adjuvant therapy
  5. PHENOL [Concomitant]
     Active Substance: PHENOL
     Indication: Bone giant cell tumour benign
     Route: 065
  6. DENOSUMAB [Concomitant]
     Active Substance: DENOSUMAB
     Indication: Bone giant cell tumour malignant
     Route: 065
  7. CISPLATIN [Concomitant]
     Active Substance: CISPLATIN
     Indication: Bone giant cell tumour malignant
     Dosage: SYSTEMIC CHEMOTHERAPY
     Route: 065
  8. CISPLATIN [Concomitant]
     Active Substance: CISPLATIN
     Indication: Adjuvant therapy
  9. METHOTREXATE [Concomitant]
     Active Substance: METHOTREXATE
     Indication: Bone giant cell tumour malignant
     Dosage: HIGH DOSE, SYSTEMIC CHEMOTHERAPY
     Route: 065
  10. METHOTREXATE [Concomitant]
     Active Substance: METHOTREXATE
     Indication: Adjuvant therapy

REACTIONS (1)
  - Acute kidney injury [Unknown]
